FAERS Safety Report 6013770-6 (Version None)
Quarter: 2008Q4

REPORT INFORMATION
  Report Type: 
  Country: None (occurrence: None)
  Receive Date: 20081219
  Receipt Date: 20081215
  Transmission Date: 20090506
  Serious: Yes (Other)
  Sender: FDA-Public Use
  Company Number: D0059588A

PATIENT
  Age: 43 Year
  Sex: Male
  Weight: 90 kg

DRUGS (4)
  1. REQUIP [Suspect]
     Indication: RESTLESS LEGS SYNDROME
     Dosage: 1MG TWICE PER DAY
     Route: 048
     Dates: start: 20081114, end: 20081208
  2. TILIDIN [Concomitant]
     Indication: PAIN
     Route: 065
  3. RESTEX [Concomitant]
     Route: 048
     Dates: end: 20081113
  4. ZOPIKLON [Concomitant]
     Route: 065

REACTIONS (17)
  - ABDOMINAL PAIN [None]
  - DEPRESSED MOOD [None]
  - DISABILITY [None]
  - DIZZINESS [None]
  - DYSKINESIA [None]
  - FATIGUE [None]
  - GAIT DISTURBANCE [None]
  - INITIAL INSOMNIA [None]
  - IRRITABILITY [None]
  - MIDDLE INSOMNIA [None]
  - MOVEMENT DISORDER [None]
  - MYOSCLEROSIS [None]
  - NAUSEA [None]
  - PAIN [None]
  - PARAPLEGIA [None]
  - RETCHING [None]
  - WRONG TECHNIQUE IN DRUG USAGE PROCESS [None]
